FAERS Safety Report 15658625 (Version 2)
Quarter: 2018Q4

REPORT INFORMATION
  Report Type: Spontaneous
  Country: EG (occurrence: EG)
  Receive Date: 20181126
  Receipt Date: 20181217
  Transmission Date: 20190205
  Serious: Yes (Death, Other)
  Sender: FDA-Public Use
  Company Number: EG-SA-2018SA318702

PATIENT
  Age: 68 Year
  Sex: Female

DRUGS (2)
  1. PLAVIX [Suspect]
     Active Substance: CLOPIDOGREL BISULFATE
     Indication: CORONARY ARTERY STENOSIS
     Dosage: 1 DF, QD
     Route: 065
  2. BRILIQUE [Suspect]
     Active Substance: TICAGRELOR
     Indication: POSTOPERATIVE CARE
     Dosage: UNK UNK, UNK
     Route: 065

REACTIONS (3)
  - Coronary artery stenosis [Unknown]
  - Cardiogenic shock [Fatal]
  - Acute myocardial infarction [Fatal]
